FAERS Safety Report 4366476-3 (Version None)
Quarter: 2004Q2

REPORT INFORMATION
  Report Type: 
  Country: None (occurrence: None)
  Receive Date: 20040527
  Receipt Date: 20040414
  Transmission Date: 20050107
  Serious: No
  Sender: FDA-Public Use
  Company Number: US-BRISTOL-MYERS SQUIBB COMPANY-12560306

PATIENT
  Sex: Female

DRUGS (1)
  1. ERBITUX [Suspect]

REACTIONS (2)
  - FEELING JITTERY [None]
  - RESTLESSNESS [None]
